FAERS Safety Report 4315249-6 (Version None)
Quarter: 2004Q1

REPORT INFORMATION
  Report Type: 
  Country: None (occurrence: None)
  Receive Date: 20040310
  Receipt Date: 20040226
  Transmission Date: 20041129
  Serious: Yes (Hospitalization)
  Sender: FDA-Public Use
  Company Number: 2004006092

PATIENT
  Age: 12 Year
  Sex: Male

DRUGS (1)
  1. SUDAFED 12 HOUR [Suspect]
     Dosage: 2 (10MG) DOSES, ORAL
     Route: 048
     Dates: start: 20030101

REACTIONS (4)
  - BLOOD PRESSURE INCREASED [None]
  - PALPITATIONS [None]
  - TACHYCARDIA [None]
  - TREMOR [None]
